FAERS Safety Report 7648860-5 (Version None)
Quarter: 2011Q3

REPORT INFORMATION
  Report Type: 
  Country: None (occurrence: None)
  Receive Date: 20110801
  Receipt Date: 20110725
  Transmission Date: 20111222
  Serious: Yes (Hospitalization)
  Sender: FDA-Public Use
  Company Number: US-GILEAD-2011-0041178

PATIENT
  Sex: Male

DRUGS (2)
  1. OXYGEN [Concomitant]
  2. LETAIRIS [Suspect]
     Indication: PULMONARY HYPERTENSION
     Route: 048
     Dates: start: 20110610

REACTIONS (3)
  - UNEVALUABLE EVENT [None]
  - DYSPNOEA [None]
  - PULMONARY OEDEMA [None]
